FAERS Safety Report 23447293 (Version 2)
Quarter: 2024Q1

REPORT INFORMATION
  Report Type: Spontaneous
  Country: US (occurrence: US)
  Receive Date: 20240126
  Receipt Date: 20240313
  Transmission Date: 20240410
  Serious: No
  Sender: FDA-Public Use
  Company Number: US-NEUROCRINE BIOSCIENCES INC.-2024NBI00541

PATIENT
  Age: 6 Decade
  Sex: Female

DRUGS (1)
  1. INGREZZA [Suspect]
     Active Substance: VALBENAZINE
     Indication: Tardive dyskinesia
     Dosage: 80 MILLIGRAM, UNKNOWN
     Route: 065
     Dates: start: 20240112, end: 202401

REACTIONS (1)
  - Drooling [Unknown]

NARRATIVE: CASE EVENT DATE: 20240101
